FAERS Safety Report 6988431-7 (Version None)
Quarter: 2010Q3

REPORT INFORMATION
  Report Type: 
  Country: None (occurrence: None)
  Receive Date: 20100916
  Receipt Date: 20100909
  Transmission Date: 20110219
  Serious: Yes (Hospitalization)
  Sender: FDA-Public Use
  Company Number: PHHO2010IN13173

PATIENT
  Sex: Male
  Weight: 85.6 kg

DRUGS (8)
  1. BLINDED ACZ885 ACZ+ [Suspect]
     Indication: TYPE 2 DIABETES MELLITUS
     Dosage: BLINDED
     Route: 042
     Dates: start: 20100426, end: 20100820
  2. BLINDED NO TREATMENT RECEIVED NOMED [Suspect]
     Indication: TYPE 2 DIABETES MELLITUS
     Dosage: BLINDED
     Route: 042
     Dates: start: 20100426, end: 20100820
  3. BLINDED PLACEBO COMP-PLA+ [Suspect]
     Indication: TYPE 2 DIABETES MELLITUS
     Dosage: BLINDED
     Route: 042
     Dates: start: 20100426, end: 20100820
  4. METFORMIN [Concomitant]
     Indication: TYPE 2 DIABETES MELLITUS
     Dosage: UNK
  5. RAMIPRIL [Concomitant]
     Indication: HYPERTENSION
     Dosage: UNK
  6. HYDROCHLOROTHIAZIDE [Concomitant]
     Indication: HYPERTENSION
     Dosage: UNK
  7. ACTRAPID HUMAN [Concomitant]
     Indication: TYPE 2 DIABETES MELLITUS
     Dosage: UNK
  8. MIXTARD HUMAN 70/30 [Concomitant]
     Indication: TYPE 2 DIABETES MELLITUS

REACTIONS (4)
  - ABDOMINAL DISTENSION [None]
  - NEPHRECTOMY [None]
  - RENAL CELL CARCINOMA [None]
  - RENAL MASS [None]
